FAERS Safety Report 20411236 (Version 1)
Quarter: 2022Q1

REPORT INFORMATION
  Report Type: Spontaneous
  Country: US (occurrence: None)
  Receive Date: 20220201
  Receipt Date: 20220201
  Transmission Date: 20220423
  Serious: Yes (Hospitalization)
  Sender: FDA-Public Use
  Company Number: None

PATIENT
  Age: 74 Year
  Sex: Male

DRUGS (1)
  1. AZATHIOPRINE [Suspect]
     Active Substance: AZATHIOPRINE
     Dosage: FREQUENCY : TWICE A DAY;?
     Route: 048
     Dates: start: 20191209, end: 20210611

REACTIONS (10)
  - Diarrhoea [None]
  - Nausea [None]
  - Vomiting [None]
  - Pancytopenia [None]
  - Haemoglobin decreased [None]
  - Haematocrit decreased [None]
  - International normalised ratio decreased [None]
  - Occult blood positive [None]
  - Myelosuppression [None]
  - Urinary tract infection [None]

NARRATIVE: CASE EVENT DATE: 20210816
